FAERS Safety Report 14304110 (Version 1)
Quarter: 2017Q4

REPORT INFORMATION
  Report Type: Spontaneous
  Country: US (occurrence: US)
  Receive Date: 20171219
  Receipt Date: 20171219
  Transmission Date: 20180321
  Serious: Yes (Hospitalization, Other)
  Sender: FDA-Public Use
  Company Number: US-OTSUKA-DJ20072076

PATIENT
  Sex: Female
  Weight: 84 kg

DRUGS (1)
  1. ABILIFY [Suspect]
     Active Substance: ARIPIPRAZOLE
     Indication: PRODUCT USED FOR UNKNOWN INDICATION
     Dosage: 2 MG, QD
     Route: 048
     Dates: end: 20070402

REACTIONS (9)
  - Respiratory failure [Unknown]
  - Neurological symptom [Unknown]
  - Weight decreased [Unknown]
  - Impaired work ability [Unknown]
  - Tremor [Unknown]
  - Coma [Unknown]
  - Headache [Unknown]
  - Musculoskeletal pain [Unknown]
  - Gait inability [Unknown]

NARRATIVE: CASE EVENT DATE: 2007
